FAERS Safety Report 9807072 (Version 1)
Quarter: 2014Q1

REPORT INFORMATION
  Report Type: Report from Study
  Country: US (occurrence: US)
  Receive Date: 20140110
  Receipt Date: 20140110
  Transmission Date: 20141002
  Serious: Yes (Other)
  Sender: FDA-Public Use
  Company Number: US-ROCHE-1330053

PATIENT
  Sex: 0

DRUGS (3)
  1. RITUXIMAB [Suspect]
     Indication: HAIRY CELL LEUKAEMIA
     Dosage: DAYS 1 AND 15
     Route: 065
  2. BENDAMUSTINE [Suspect]
     Indication: HAIRY CELL LEUKAEMIA
     Dosage: DAYS 1 AND 2, FOR SIX CYCLES
     Route: 065
  3. BENDAMUSTINE [Suspect]
     Dosage: DAYS 1 AND 2, FOR SIX CYCLES
     Route: 065

REACTIONS (9)
  - Lymphopenia [Unknown]
  - Leukopenia [Unknown]
  - Alanine aminotransferase increased [Unknown]
  - Neutropenia [Unknown]
  - Aspartate aminotransferase increased [Unknown]
  - Febrile neutropenia [Unknown]
  - Hypertension [Unknown]
  - Pneumonia [Unknown]
  - Thrombocytopenia [Unknown]
